FAERS Safety Report 10061701 (Version 1)
Quarter: 2014Q2

REPORT INFORMATION
  Report Type: Spontaneous
  Country: US (occurrence: US)
  Receive Date: 20140407
  Receipt Date: 20140407
  Transmission Date: 20141212
  Serious: No
  Sender: FDA-Public Use
  Company Number: US-TARO-2013P1021568

PATIENT
  Sex: Female

DRUGS (2)
  1. FLUOROURACIL TOPICAL CREAM USP 5% [Suspect]
     Route: 061
     Dates: start: 2013, end: 2013
  2. VASELINE [Suspect]
     Route: 061

REACTIONS (4)
  - Photosensitivity reaction [Not Recovered/Not Resolved]
  - Scab [Not Recovered/Not Resolved]
  - Eyelid function disorder [Unknown]
  - Lip disorder [Unknown]
